FAERS Safety Report 14852637 (Version 1)
Quarter: 2018Q2

REPORT INFORMATION
  Report Type: Spontaneous
  Country: FR (occurrence: FR)
  Receive Date: 20180507
  Receipt Date: 20180507
  Transmission Date: 20180711
  Serious: Yes (Other)
  Sender: FDA-Public Use
  Company Number: FR-MERCK KGAA-2047300

PATIENT
  Age: 52 Year
  Sex: Female

DRUGS (1)
  1. NOVOTHYROX [Suspect]
     Active Substance: LEVOTHYROXINE SODIUM
     Indication: PRODUCT USED FOR UNKNOWN INDICATION

REACTIONS (20)
  - Visual impairment [None]
  - Dyspnoea [None]
  - Depression [None]
  - Amnesia [None]
  - Anti-thyroid antibody positive [None]
  - Headache [None]
  - Abdominal pain upper [None]
  - Insomnia [None]
  - Fatigue [None]
  - Muscle spasms [None]
  - Alopecia [None]
  - Arrhythmia [None]
  - Musculoskeletal stiffness [None]
  - Tooth disorder [None]
  - Hypokinesia [None]
  - Loss of personal independence in daily activities [None]
  - Myalgia [None]
  - Tinnitus [None]
  - Social avoidant behaviour [None]
  - Irritability [None]

NARRATIVE: CASE EVENT DATE: 20170317
